FAERS Safety Report 24206400 (Version 1)
Quarter: 2024Q3

REPORT INFORMATION
  Report Type: Spontaneous
  Country: IT (occurrence: IT)
  Receive Date: 20240813
  Receipt Date: 20240813
  Transmission Date: 20241016
  Serious: Yes (Hospitalization)
  Sender: BIOGEN
  Company Number: IT-BIOGEN-2024BI01269901

PATIENT
  Age: 8 Year
  Sex: Male

DRUGS (1)
  1. SPINRAZA [Suspect]
     Active Substance: NUSINERSEN
     Indication: Spinal muscular atrophy
     Route: 050
     Dates: start: 20171201, end: 20240726

REACTIONS (6)
  - Ocular procedural complication [Recovered/Resolved]
  - Urinary tract procedural complication [Recovered/Resolved]
  - Post procedural haematoma [Recovered/Resolved]
  - Opisthotonus [Unknown]
  - Procedural pain [Recovered/Resolved]
  - Scoliosis [Unknown]

NARRATIVE: CASE EVENT DATE: 20240517
